FAERS Safety Report 24278587 (Version 14)
Quarter: 2025Q3

REPORT INFORMATION
  Report Type: Report from Study
  Country: US (occurrence: US)
  Receive Date: 20240903
  Receipt Date: 20250925
  Transmission Date: 20251021
  Serious: Yes (Other)
  Sender: SUNOVION
  Company Number: US-SUMITOMO PHARMA SWITZERLAND GMBH-2024SPA000801

PATIENT
  Age: 73 Year
  Sex: Male

DRUGS (3)
  1. ORGOVYX [Suspect]
     Active Substance: RELUGOLIX
     Indication: Prostate cancer
     Dosage: 360 MG, SINGLE
     Route: 048
     Dates: start: 20240611, end: 20240611
  2. ORGOVYX [Suspect]
     Active Substance: RELUGOLIX
     Dosage: 120 MG, QD
     Route: 048
     Dates: start: 20240612
  3. BENZONATATE [Concomitant]
     Active Substance: BENZONATATE
     Dosage: UNK, BID 1 CAPSULE

REACTIONS (27)
  - Kidney infection [Unknown]
  - Urinary retention [Unknown]
  - Prostatic operation [Unknown]
  - Diabetes mellitus [Unknown]
  - Acute kidney injury [Unknown]
  - Surgery [Unknown]
  - Cold sweat [Unknown]
  - Chest pain [Unknown]
  - Device related infection [Unknown]
  - Joint swelling [Unknown]
  - Pollakiuria [Unknown]
  - Vision blurred [Unknown]
  - Burning sensation [Unknown]
  - Rheumatic disorder [Unknown]
  - Drug interaction [Unknown]
  - Urinary tract infection [Unknown]
  - Abdominal pain [Unknown]
  - Abdominal discomfort [Unknown]
  - Nausea [Unknown]
  - Dizziness [Unknown]
  - Asthenia [Unknown]
  - Flushing [Unknown]
  - Blood glucose increased [Not Recovered/Not Resolved]
  - Headache [Unknown]
  - Hyperhidrosis [Not Recovered/Not Resolved]
  - Arthralgia [Unknown]
  - Product use issue [Recovered/Resolved]

NARRATIVE: CASE EVENT DATE: 20240724
